FAERS Safety Report 26135875 (Version 1)
Quarter: 2025Q4

REPORT INFORMATION
  Report Type: Spontaneous
  Country: CN (occurrence: CN)
  Receive Date: 20251209
  Receipt Date: 20251209
  Transmission Date: 20260117
  Serious: Yes (Other)
  Sender: SANDOZ
  Company Number: CN-002147023-NVSC2025CN186333

PATIENT
  Age: 12 Year
  Sex: Female
  Weight: 35 kg

DRUGS (1)
  1. DEXAMETHASONE\TOBRAMYCIN [Suspect]
     Active Substance: DEXAMETHASONE\TOBRAMYCIN
     Indication: Eye infection
     Dosage: 0.100 G, QID
     Route: 047
     Dates: start: 20251122, end: 20251130

REACTIONS (3)
  - Vision blurred [Unknown]
  - Glaucoma [Unknown]
  - Meibomian gland dysfunction [Unknown]

NARRATIVE: CASE EVENT DATE: 20251130
